FAERS Safety Report 8300485 (Version 4)
Quarter: 2014Q2

REPORT INFORMATION
  Report Type: Spontaneous
  Country: US (occurrence: US)
  Receive Date: 20111219
  Receipt Date: 20140617
  Transmission Date: 20141212
  Serious: No
  Sender: FDA-Public Use
  Company Number: US-ASTRAZENECA-2011SE16463

PATIENT
  Age: 88 Year
  Sex: Female
  Weight: 59 kg

DRUGS (19)
  1. CRESTOR [Suspect]
     Indication: LOW DENSITY LIPOPROTEIN INCREASED
     Route: 048
     Dates: start: 2004, end: 201101
  2. CRESTOR [Suspect]
     Indication: LOW DENSITY LIPOPROTEIN INCREASED
     Route: 048
     Dates: start: 2004, end: 201101
  3. CRESTOR [Suspect]
     Indication: LOW DENSITY LIPOPROTEIN INCREASED
     Route: 048
  4. CRESTOR [Suspect]
     Indication: LOW DENSITY LIPOPROTEIN INCREASED
     Route: 048
  5. CRESTOR [Suspect]
     Indication: LOW DENSITY LIPOPROTEIN INCREASED
     Route: 048
     Dates: end: 201101
  6. CRESTOR [Suspect]
     Indication: LOW DENSITY LIPOPROTEIN INCREASED
     Route: 048
     Dates: end: 201101
  7. CRESTOR [Suspect]
     Indication: LOW DENSITY LIPOPROTEIN INCREASED
     Route: 048
     Dates: end: 20130112
  8. CRESTOR [Suspect]
     Indication: LOW DENSITY LIPOPROTEIN INCREASED
     Route: 048
     Dates: end: 20130112
  9. CRESTOR [Suspect]
     Indication: LOW DENSITY LIPOPROTEIN INCREASED
     Route: 048
     Dates: start: 20140112
  10. CRESTOR [Suspect]
     Indication: LOW DENSITY LIPOPROTEIN INCREASED
     Route: 048
     Dates: start: 20140112
  11. CRESTOR [Suspect]
     Indication: LOW DENSITY LIPOPROTEIN INCREASED
     Route: 048
     Dates: end: 20140304
  12. CRESTOR [Suspect]
     Indication: LOW DENSITY LIPOPROTEIN INCREASED
     Route: 048
     Dates: end: 20140304
  13. XARELTO [Suspect]
     Route: 065
     Dates: start: 20130128, end: 20140217
  14. LEVOTHYROXINE [Concomitant]
     Indication: THYROIDITIS
  15. BENICAR HCT [Concomitant]
  16. NORVASC [Concomitant]
  17. AMIODARONE [Concomitant]
     Indication: BLOOD PRESSURE ABNORMAL
  18. ASPIRIN BABY [Concomitant]
     Indication: ANTICOAGULANT THERAPY
  19. XANAX [Concomitant]
     Indication: SLEEP DISORDER

REACTIONS (12)
  - Gait disturbance [Unknown]
  - Back pain [Unknown]
  - Adverse event [Unknown]
  - Hypertension [Recovered/Resolved]
  - Epistaxis [Recovered/Resolved]
  - Musculoskeletal discomfort [Unknown]
  - Sleep disorder due to general medical condition, insomnia type [Unknown]
  - Low density lipoprotein increased [Not Recovered/Not Resolved]
  - Myalgia [Unknown]
  - Therapy cessation [Unknown]
  - Blood cholesterol increased [Not Recovered/Not Resolved]
  - Off label use [Unknown]
